FAERS Safety Report 8454405-2 (Version None)
Quarter: 2012Q2

REPORT INFORMATION
  Report Type: 
  Country: None (occurrence: None)
  Receive Date: 20120621
  Receipt Date: 20120614
  Transmission Date: 20120825
  Serious: Yes (Hospitalization)
  Sender: FDA-Public Use
  Company Number: US-BIOGENIDEC-2011BI022690

PATIENT
  Age: 68 Year
  Sex: Male

DRUGS (2)
  1. AVONEX [Suspect]
     Indication: MULTIPLE SCLEROSIS
     Route: 030
     Dates: start: 20001030
  2. AVONEX [Suspect]
     Route: 030

REACTIONS (3)
  - PALLOR [None]
  - ABSCESS LIMB [None]
  - INJECTION SITE INFECTION [None]
